FAERS Safety Report 6715445-4 (Version None)
Quarter: 2010Q2

REPORT INFORMATION
  Report Type: 
  Country: None (occurrence: None)
  Receive Date: 20100507
  Receipt Date: 20100423
  Transmission Date: 20101027
  Serious: Yes (Hospitalization)
  Sender: FDA-Public Use
  Company Number: US-SANOFI-AVENTIS-2010SA024298

PATIENT
  Age: 86 Year
  Sex: Female

DRUGS (3)
  1. MULTAQ [Suspect]
     Indication: ATRIAL FIBRILLATION
     Route: 048
     Dates: start: 20100101, end: 20100101
  2. COUMADIN [Concomitant]
  3. DIGOXIN [Concomitant]

REACTIONS (3)
  - COMA [None]
  - CONVULSION [None]
  - ISCHAEMIC STROKE [None]
